FAERS Safety Report 8620441-6 (Version None)
Quarter: 2012Q3

REPORT INFORMATION
  Report Type: 
  Country: None (occurrence: None)
  Receive Date: 20120824
  Receipt Date: 20120824
  Transmission Date: 20120928
  Serious: Yes (Disabling, Other)
  Sender: FDA-Public Use
  Company Number: GB-BAYER-2012-087876

PATIENT
  Age: 44 Year
  Sex: Male
  Weight: 73 kg

DRUGS (3)
  1. CIPROFLOXACIN [Suspect]
     Indication: EPIDIDYMITIS
     Dosage: 500 MG, BID
     Route: 048
     Dates: start: 20120802, end: 20120808
  2. LANSOPRAZOLE [Concomitant]
  3. FLUOXETINE HCL [Concomitant]

REACTIONS (9)
  - DEPRESSION [None]
  - AGITATION [None]
  - ANGER [None]
  - MALAISE [None]
  - HEADACHE [None]
  - MUSCLE SPASMS [None]
  - INSOMNIA [None]
  - TENDON PAIN [None]
  - VIOLENCE-RELATED SYMPTOM [None]
